FAERS Safety Report 9068707 (Version 1)
Quarter: 2013Q1

REPORT INFORMATION
  Report Type: Spontaneous
  Country: US (occurrence: None)
  Receive Date: 20130212
  Receipt Date: 20130212
  Transmission Date: 20140127
  Serious: Yes (Other)
  Sender: FDA-Public Use
  Company Number: None

PATIENT
  Age: 69 Year
  Sex: Female
  Weight: 79.83 kg

DRUGS (2)
  1. LEVOTHYROXINE 0.075 MG (75 MCG) TABS [Suspect]
     Indication: THYROID DISORDER
     Dosage: 1 PILL  2 TIMES DAY  BY MOUTH
     Route: 048
  2. THYROID (ARMOUR) 2G (120 MG) TABS [Suspect]
     Indication: THYROID DISORDER
     Dosage: 1 PILL  2 TIMES DAY  BY MOUTH?ONE DAY
     Route: 048

REACTIONS (12)
  - Feeling hot [None]
  - Pruritus [None]
  - Sunburn [None]
  - Nausea [None]
  - Dizziness [None]
  - Presyncope [None]
  - Dyspnoea [None]
  - Heart rate irregular [None]
  - Vision blurred [None]
  - Feeling cold [None]
  - Blood glucose fluctuation [None]
  - Diarrhoea [None]
